FAERS Safety Report 21024450 (Version 1)
Quarter: 2022Q2

REPORT INFORMATION
  Report Type: Spontaneous
  Country: US (occurrence: US)
  Receive Date: 20220629
  Receipt Date: 20220629
  Transmission Date: 20220721
  Serious: Yes (Other)
  Sender: FDA-Public Use
  Company Number: US-PURDUE-USA-2022-0294806

PATIENT

DRUGS (2)
  1. DILAUDID [Interacting]
     Active Substance: HYDROMORPHONE HYDROCHLORIDE
     Indication: Pain
     Dosage: UNKNOWN
     Route: 048
  2. CORTISONE ACETATE [Interacting]
     Active Substance: CORTISONE ACETATE
     Indication: Pain
     Dosage: UNKNOWN
     Route: 065

REACTIONS (11)
  - Arthropathy [Unknown]
  - Respiratory arrest [Unknown]
  - Arthralgia [Unknown]
  - Oesophageal pain [Unknown]
  - Dyspnoea [Unknown]
  - Swelling face [Unknown]
  - Pharyngeal oedema [Unknown]
  - Confusional state [Unknown]
  - Therapeutic product effect decreased [Unknown]
  - Reaction to excipient [Unknown]
  - Drug interaction [Unknown]
